FAERS Safety Report 13926465 (Version 1)
Quarter: 2017Q3

REPORT INFORMATION
  Report Type: Spontaneous
  Country: US (occurrence: US)
  Receive Date: 20170831
  Receipt Date: 20170831
  Transmission Date: 20171127
  Serious: Yes (Other)
  Sender: FDA-Public Use
  Company Number: US-TOLMAR, INC.-2017US005541

PATIENT
  Sex: Male

DRUGS (1)
  1. ELIGARD [Suspect]
     Active Substance: LEUPROLIDE ACETATE
     Indication: PROSTATE CANCER
     Dosage: 45 MG, 6 MONTH DOSE
     Route: 058
     Dates: start: 20160920

REACTIONS (3)
  - Hot flush [Not Recovered/Not Resolved]
  - Patient uncooperative [Unknown]
  - Drug dose omission [Unknown]

NARRATIVE: CASE EVENT DATE: 2016
